FAERS Safety Report 8953589 (Version 1)
Quarter: 2012Q4

REPORT INFORMATION
  Report Type: 
  Country: US (occurrence: US)
  Receive Date: 20121206
  Receipt Date: 20121206
  Transmission Date: 20130627
  Serious: Yes (Other)
  Sender: FDA-Public Use
  Company Number: US-ASTRAZENECA-2012SE90315

PATIENT

DRUGS (1)
  1. ZESTRIL [Suspect]
     Route: 048

REACTIONS (4)
  - Coronary artery occlusion [Unknown]
  - Chest pain [Unknown]
  - Cough [Unknown]
  - Nasopharyngitis [Unknown]
